FAERS Safety Report 9867728 (Version 1)
Quarter: 2014Q1

REPORT INFORMATION
  Report Type: Spontaneous
  Country: US (occurrence: US)
  Receive Date: 20140204
  Receipt Date: 20140204
  Transmission Date: 20141002
  Serious: Yes (Other)
  Sender: FDA-Public Use
  Company Number: US-TARO-2014P1000679

PATIENT
  Age: 75 Year
  Sex: Female
  Weight: 56.7 kg

DRUGS (4)
  1. FLUOCINONIDE CREAM USP 0.05% [Suspect]
     Indication: LICHEN PLANUS
     Route: 061
     Dates: start: 2007
  2. PREMARIN [Concomitant]
  3. VITAMINS [Concomitant]
  4. SYNTHROID [Concomitant]

REACTIONS (4)
  - Osteoporosis [Not Recovered/Not Resolved]
  - Subcorneal pustular dermatosis [Not Recovered/Not Resolved]
  - Skin atrophy [Not Recovered/Not Resolved]
  - Off label use [Not Recovered/Not Resolved]
